FAERS Safety Report 7590950-X (Version None)
Quarter: 2011Q3

REPORT INFORMATION
  Report Type: 
  Country: None (occurrence: None)
  Receive Date: 20110705
  Receipt Date: 20110628
  Transmission Date: 20111222
  Serious: Yes (Hospitalization)
  Sender: FDA-Public Use
  Company Number: PHHO2010AU13725

PATIENT
  Sex: Female
  Weight: 55 kg

DRUGS (5)
  1. TACROLIMUS [Suspect]
     Indication: LUNG TRANSPLANT
     Dosage: 0.25 MG, UNK
     Route: 048
     Dates: start: 20100912, end: 20110607
  2. CERTICAN [Suspect]
     Dosage: UNK
     Route: 048
     Dates: start: 20100913
  3. CERTICAN [Suspect]
     Indication: LUNG TRANSPLANT
     Dosage: 0.5MG/DAY
     Route: 048
     Dates: start: 20080701, end: 20100910
  4. MYCOPHENOLIC ACID [Suspect]
     Indication: LUNG TRANSPLANT
     Dosage: UNK
     Route: 048
     Dates: start: 20080531, end: 20080630
  5. CYCLOSPORINE [Concomitant]
     Indication: LUNG TRANSPLANT

REACTIONS (4)
  - NERVOUS SYSTEM DISORDER [None]
  - NAUSEA [None]
  - TOXICITY TO VARIOUS AGENTS [None]
  - HEADACHE [None]
